FAERS Safety Report 8021959-X (Version None)
Quarter: 2012Q1

REPORT INFORMATION
  Report Type: 
  Country: None (occurrence: None)
  Receive Date: 20120104
  Receipt Date: 20120102
  Transmission Date: 20120608
  Serious: Yes (Death, Hospitalization)
  Sender: FDA-Public Use
  Company Number: PHHY2011BR111526

PATIENT
  Sex: Male

DRUGS (3)
  1. GLYBURIDE [Suspect]
  2. GALVUS [Suspect]
     Dosage: 50 MG, UNK
  3. METFORMIN HCL [Suspect]

REACTIONS (2)
  - GENERAL PHYSICAL HEALTH DETERIORATION [None]
  - DEATH [None]
